FAERS Safety Report 5685096-1 (Version None)
Quarter: 2008Q1

REPORT INFORMATION
  Report Type: 
  Country: None (occurrence: None)
  Receive Date: 20080327
  Receipt Date: 20080317
  Transmission Date: 20080703
  Serious: Yes (Death)
  Sender: FDA-Public Use
  Company Number: S07-USA-06329-01

PATIENT
  Age: 53 Year
  Sex: Female
  Weight: 67.586 kg

DRUGS (6)
  1. LEXAPRO [Suspect]
     Indication: DEPRESSION
     Dosage: 10 MG QD PO
     Route: 048
     Dates: start: 20071019, end: 20071210
  2. OXYCONTIN [Concomitant]
  3. PERCOCET [Concomitant]
  4. AVAPRO [Concomitant]
  5. PROTONIX [Concomitant]
  6. CELEXA [Concomitant]

REACTIONS (5)
  - ANXIETY [None]
  - BEREAVEMENT REACTION [None]
  - COMPLETED SUICIDE [None]
  - GUN SHOT WOUND [None]
  - PROCEDURAL PAIN [None]
